FAERS Safety Report 14940269 (Version 1)
Quarter: 2018Q2

REPORT INFORMATION
  Report Type: Report from Study
  Country: ES (occurrence: ES)
  Receive Date: 20180525
  Receipt Date: 20180525
  Transmission Date: 20180711
  Serious: No
  Sender: FDA-Public Use
  Company Number: ES-SA-2018SA135106

PATIENT
  Age: 50 Year
  Sex: Female

DRUGS (1)
  1. ALEMTUZUMAB [Suspect]
     Active Substance: ALEMTUZUMAB
     Indication: RELAPSING-REMITTING MULTIPLE SCLEROSIS
     Dosage: UNK UNK,UNK
     Route: 041
     Dates: start: 20170801

REACTIONS (10)
  - Rash [Recovered/Resolved]
  - Blood creatinine increased [Unknown]
  - Neutrophilia [Unknown]
  - Headache [Recovered/Resolved]
  - Leukocytosis [Unknown]
  - Headache [Recovered/Resolved]
  - Headache [Recovered/Resolved]
  - Lymphopenia [Recovered/Resolved]
  - Visual impairment [Recovered/Resolved]
  - Bradycardia [Recovered/Resolved]

NARRATIVE: CASE EVENT DATE: 20170804
